FAERS Safety Report 19216122 (Version 1)
Quarter: 2021Q2

REPORT INFORMATION
  Report Type: Spontaneous
  Country: US (occurrence: US)
  Receive Date: 20210504
  Receipt Date: 20210504
  Transmission Date: 20210717
  Serious: Yes (Other)
  Sender: FDA-Public Use
  Company Number: None

PATIENT
  Age: 64 Year
  Sex: Female
  Weight: 110.5 kg

DRUGS (3)
  1. IMDEVIMAB. [Concomitant]
     Active Substance: IMDEVIMAB
     Dates: start: 20210430, end: 20210430
  2. CASIRIVIMAB. [Concomitant]
     Active Substance: CASIRIVIMAB
     Dates: start: 20210430, end: 20210430
  3. CASIRIVIMAB/IMDEVIMAB [Suspect]
     Active Substance: CASIRIVIMAB\IMDEVIMAB
     Indication: COVID-19
     Dosage: ?          OTHER FREQUENCY:ONCE;?
     Route: 042
     Dates: start: 20210430, end: 20210430

REACTIONS (6)
  - Urticaria [None]
  - Dyspnoea exertional [None]
  - Cough [None]
  - Infusion site erythema [None]
  - Pruritus [None]
  - Breath sounds abnormal [None]

NARRATIVE: CASE EVENT DATE: 20210430
